FAERS Safety Report 5227894-4 (Version None)
Quarter: 2007Q1

REPORT INFORMATION
  Report Type: 
  Country: None (occurrence: None)
  Receive Date: 20070202
  Receipt Date: 20070123
  Transmission Date: 20070707
  Serious: Yes (Other)
  Sender: FDA-Public Use
  Company Number: JP-PFIZER INC-2006138555

PATIENT
  Sex: Male
  Weight: 29.1 kg

DRUGS (20)
  1. SOLU-MEDROL [Suspect]
     Indication: PROPHYLAXIS AGAINST TRANSPLANT REJECTION
     Route: 042
     Dates: start: 20061101, end: 20061108
  2. OMEPRAL [Suspect]
  3. ALPROSTADIL [Concomitant]
     Route: 042
     Dates: start: 20061101, end: 20061102
  4. DOPAMINE HCL [Concomitant]
     Route: 042
     Dates: start: 20061101, end: 20061102
  5. LASIX [Concomitant]
     Route: 042
  6. MANNITOL [Concomitant]
     Route: 042
     Dates: start: 20061101, end: 20061101
  7. MIRACLID [Concomitant]
     Route: 042
     Dates: start: 20061101, end: 20061104
  8. PROGRAF [Concomitant]
  9. CEFAZOLIN SODIUM [Concomitant]
     Route: 042
     Dates: start: 20061101, end: 20061104
  10. EPHEDRINE HYDROCHLORIDE [Concomitant]
     Route: 042
     Dates: start: 20061101, end: 20061101
  11. NOVOLIN 50/50 [Concomitant]
     Route: 042
     Dates: start: 20061101, end: 20061101
  12. CELLCEPT [Concomitant]
     Route: 042
  13. SIMULECT [Concomitant]
     Route: 042
     Dates: start: 20061101, end: 20061101
  14. SEVOFLURANE [Concomitant]
     Dates: start: 20061101, end: 20061101
  15. THIOPENTAL SODIUM [Concomitant]
     Dates: start: 20061101, end: 20061101
  16. MUSCULAX [Concomitant]
     Route: 042
     Dates: start: 20061101, end: 20061101
  17. FENTANEST [Concomitant]
     Dates: start: 20061101, end: 20061101
  18. ATROPINE SULFATE [Concomitant]
     Dates: start: 20061101, end: 20061101
  19. NEOSTIGMINE [Concomitant]
     Dates: start: 20061101, end: 20061101
  20. SOLITA-T3 INJECTION [Concomitant]
     Route: 042

REACTIONS (10)
  - CHOKING SENSATION [None]
  - DRUG HYPERSENSITIVITY [None]
  - DYSPNOEA [None]
  - FEELING HOT [None]
  - FLUSHING [None]
  - HEART RATE INCREASED [None]
  - HYPERSENSITIVITY [None]
  - HYPOAESTHESIA [None]
  - RESPIRATION ABNORMAL [None]
  - SENSE OF OPPRESSION [None]
